FAERS Safety Report 12458498 (Version 1)
Quarter: 2016Q2

REPORT INFORMATION
  Report Type: Spontaneous
  Country: US (occurrence: None)
  Receive Date: 20160610
  Receipt Date: 20160610
  Transmission Date: 20160815
  Serious: No
  Sender: FDA-Public Use
  Company Number: None

PATIENT
  Age: 60 Year
  Sex: Male

DRUGS (4)
  1. RANITIDINE. [Concomitant]
     Active Substance: RANITIDINE
  2. RIBASPHERE [Suspect]
     Active Substance: RIBAVIRIN
     Indication: HEPATITIS C
     Route: 048
     Dates: start: 201603
  3. VITAMIN D [Concomitant]
     Active Substance: CHOLECALCIFEROL
  4. VIEKIRA PAK [Concomitant]
     Active Substance: DASABUVIR\OMBITASVIR\PARITAPREVIR\RITONAVIR

REACTIONS (3)
  - Cough [None]
  - Skin exfoliation [None]
  - Dry skin [None]

NARRATIVE: CASE EVENT DATE: 201605
